FAERS Safety Report 24694332 (Version 2)
Quarter: 2025Q3

REPORT INFORMATION
  Report Type: Spontaneous
  Country: EU (occurrence: EU)
  Receive Date: 20241204
  Receipt Date: 20250701
  Transmission Date: 20251020
  Serious: Yes (Death, Other)
  Sender: AUROBINDO
  Company Number: EU-ADIENNEP-2024AD000874

PATIENT
  Age: 49 Year
  Sex: Male

DRUGS (5)
  1. MELPHALAN [Suspect]
     Active Substance: MELPHALAN
     Indication: Allogenic stem cell transplantation
     Route: 065
  2. FLUDARABINE [Suspect]
     Active Substance: FLUDARABINE PHOSPHATE
     Indication: Allogenic stem cell transplantation
     Route: 065
  3. CYTARABINE [Suspect]
     Active Substance: CYTARABINE
     Indication: Allogenic stem cell transplantation
     Route: 065
  4. AMSACRINE [Suspect]
     Active Substance: AMSACRINE
     Indication: Allogenic stem cell transplantation
     Route: 065
  5. MITOXANTRONE [Suspect]
     Active Substance: MITOXANTRONE HYDROCHLORIDE
     Indication: Drug therapy
     Route: 065

REACTIONS (2)
  - Multiple organ dysfunction syndrome [Fatal]
  - Cerebral toxoplasmosis [Unknown]
